FAERS Safety Report 22935295 (Version 2)
Quarter: 2023Q4

REPORT INFORMATION
  Report Type: Spontaneous
  Country: CN (occurrence: CN)
  Receive Date: 20230912
  Receipt Date: 20231003
  Transmission Date: 20240110
  Serious: Yes (Other)
  Sender: FDA-Public Use
  Company Number: CN-009507513-2309CHN002080

PATIENT
  Age: 71 Year
  Sex: Male
  Weight: 59 kg

DRUGS (2)
  1. FOSAPREPITANT DIMEGLUMINE [Suspect]
     Active Substance: FOSAPREPITANT DIMEGLUMINE
     Indication: Prophylaxis of nausea and vomiting
     Dosage: 150 MG, QD
     Route: 041
     Dates: start: 20230814, end: 20230814
  2. OXALIPLATIN [Concomitant]
     Active Substance: OXALIPLATIN
     Indication: Chemotherapy
     Dosage: 150 MG, QD
     Route: 041
     Dates: start: 20230814, end: 20230814

REACTIONS (2)
  - Erythema induratum [Recovered/Resolved]
  - Limb discomfort [Recovered/Resolved]

NARRATIVE: CASE EVENT DATE: 20230815
